FAERS Safety Report 19815955 (Version 1)
Quarter: 2021Q3

REPORT INFORMATION
  Report Type: Spontaneous
  Country: CA (occurrence: CA)
  Receive Date: 20210910
  Receipt Date: 20210910
  Transmission Date: 20211014
  Serious: Yes (Other)
  Sender: FDA-Public Use
  Company Number: CA-LUPIN PHARMACEUTICALS INC.-2021-17599

PATIENT
  Age: 78 Year
  Sex: Female

DRUGS (3)
  1. APIXABAN [Interacting]
     Active Substance: APIXABAN
     Indication: ANTICOAGULANT THERAPY
     Dosage: 5 MILLIGRAM, BID
     Route: 048
  2. APIXABAN [Interacting]
     Active Substance: APIXABAN
     Indication: THROMBOPHLEBITIS SUPERFICIAL
  3. IMATINIB MESYLATE. [Suspect]
     Active Substance: IMATINIB MESYLATE
     Indication: CHRONIC MYELOID LEUKAEMIA
     Dosage: 400 MILLIGRAM, QD
     Route: 065

REACTIONS (2)
  - Thrombotic stroke [Unknown]
  - Drug interaction [Unknown]
